FAERS Safety Report 4728717-X (Version None)
Quarter: 2005Q3

REPORT INFORMATION
  Report Type: 
  Country: None (occurrence: None)
  Receive Date: 20050729
  Receipt Date: 20050722
  Transmission Date: 20060218
  Serious: Yes (Hospitalization)
  Sender: FDA-Public Use
  Company Number: 2005CG01280

PATIENT
  Age: 84 Year
  Sex: Female

DRUGS (13)
  1. ATENOLOL [Suspect]
     Dates: end: 20050426
  2. NEXIUM [Suspect]
     Route: 048
     Dates: start: 20050426, end: 20050617
  3. CORDARONE [Suspect]
     Route: 048
     Dates: start: 20050426, end: 20050617
  4. ODRIK [Suspect]
     Indication: ESSENTIAL HYPERTENSION
     Route: 048
     Dates: start: 20050426, end: 20050617
  5. AUGMENTIN [Suspect]
     Indication: LUNG DISORDER
     Route: 048
     Dates: start: 20050427, end: 20050504
  6. ZOCOR [Suspect]
     Route: 048
     Dates: end: 20050611
  7. AMAREL [Suspect]
     Indication: DIABETES MELLITUS
     Route: 048
     Dates: end: 20050611
  8. APROVEL [Suspect]
     Dates: end: 20050426
  9. EUPANTOL [Suspect]
     Dates: end: 20050426
  10. KARDEGIC [Concomitant]
  11. CORTANCYL [Concomitant]
  12. CARDENSIEL [Concomitant]
     Dates: start: 20050426
  13. LASILIX [Concomitant]
     Dates: start: 20050426

REACTIONS (3)
  - HEPATIC NECROSIS [None]
  - HEPATITIS CHOLESTATIC [None]
  - JAUNDICE [None]
